FAERS Safety Report 7458349-4 (Version None)
Quarter: 2011Q2

REPORT INFORMATION
  Report Type: 
  Country: None (occurrence: None)
  Receive Date: 20110504
  Receipt Date: 20110502
  Transmission Date: 20111010
  Serious: Yes (Other)
  Sender: FDA-Public Use
  Company Number: US-PFIZER INC-2011093998

PATIENT
  Age: 27 Year
  Sex: Male

DRUGS (2)
  1. ALCOHOL [Suspect]
     Dosage: UNK
     Route: 065
  2. ROBITUSSIN COUGH LONG ACTING [Suspect]
     Dosage: UNK
     Route: 065

REACTIONS (1)
  - ELECTROCARDIOGRAM QT PROLONGED [None]
